FAERS Safety Report 5803087-4 (Version None)
Quarter: 2008Q3

REPORT INFORMATION
  Report Type: 
  Country: None (occurrence: None)
  Receive Date: 20080708
  Receipt Date: 20080701
  Transmission Date: 20090109
  Serious: Yes (Other)
  Sender: FDA-Public Use
  Company Number: US-BAYER-200811860BCC

PATIENT
  Age: 75 Year
  Sex: Female
  Weight: 86 kg

DRUGS (5)
  1. ALEVE [Suspect]
     Indication: ARTHRALGIA
     Dosage: AS USED: 220 MG  UNIT DOSE: 220 MG
     Route: 048
  2. AYR MIST [Concomitant]
  3. AYR GEL [Concomitant]
  4. KY JELLY [Concomitant]
  5. OXYGEN [Concomitant]

REACTIONS (1)
  - EPISTAXIS [None]
